FAERS Safety Report 9708499 (Version 1)
Quarter: 2013Q4

REPORT INFORMATION
  Report Type: Spontaneous
  Country: US (occurrence: US)
  Receive Date: 20131125
  Receipt Date: 20131125
  Transmission Date: 20140711
  Serious: Yes (Life-Threatening, Hospitalization, Other)
  Sender: FDA-Public Use
  Company Number: US-ASTRAZENECA-2013SE86124

PATIENT
  Age: 53 Year
  Sex: Female
  Weight: 67.1 kg

DRUGS (5)
  1. SEROQUEL [Suspect]
     Indication: SLEEP DISORDER
     Dosage: 50-1500 MG DAILY
     Route: 048
     Dates: start: 2003, end: 201310
  2. WELLBUTRIN [Concomitant]
     Route: 048
  3. LEVOTHYROXINE [Concomitant]
     Indication: THYROID DISORDER
     Dosage: DAILY
     Route: 048
  4. RISPERDAL [Concomitant]
     Indication: SCHIZOPHRENIA
     Dosage: DAILY
     Route: 048
  5. BIPAP [Concomitant]
     Indication: SLEEP APNOEA SYNDROME
     Dosage: HS
     Route: 055

REACTIONS (8)
  - Thermal burn [Unknown]
  - Poor peripheral circulation [Not Recovered/Not Resolved]
  - Amnesia [Not Recovered/Not Resolved]
  - Schizophrenia [Unknown]
  - Hypothyroidism [Not Recovered/Not Resolved]
  - Sleep apnoea syndrome [Not Recovered/Not Resolved]
  - Somnambulism [Unknown]
  - Off label use [Recovered/Resolved]
